FAERS Safety Report 20155492 (Version 1)
Quarter: 2021Q4

REPORT INFORMATION
  Report Type: Spontaneous
  Country: US (occurrence: US)
  Receive Date: 20211207
  Receipt Date: 20211207
  Transmission Date: 20220304
  Serious: Yes (Other)
  Sender: FDA-Public Use
  Company Number: US-NOVARTISPH-NVSC2021US271412

PATIENT
  Age: 81 Year

DRUGS (2)
  1. LETROZOLE [Suspect]
     Active Substance: LETROZOLE
     Indication: Product used for unknown indication
     Route: 065
  2. IBRANCE [Suspect]
     Active Substance: PALBOCICLIB
     Indication: Product used for unknown indication
     Route: 065

REACTIONS (6)
  - Neuropathy peripheral [Unknown]
  - Asthenia [Unknown]
  - Fatigue [Unknown]
  - Pain in extremity [Unknown]
  - Tooth injury [Unknown]
  - Bone lesion [Unknown]
